FAERS Safety Report 7272673-X (Version None)
Quarter: 2011Q1

REPORT INFORMATION
  Report Type: 
  Country: None (occurrence: None)
  Receive Date: 20110203
  Receipt Date: 20110127
  Transmission Date: 20110831
  Serious: Yes (Hospitalization)
  Sender: FDA-Public Use
  Company Number: FR-ASTRAZENECA-2011SE05360

PATIENT
  Sex: Male

DRUGS (6)
  1. ZOPHREN [Concomitant]
     Dates: start: 20101208, end: 20101208
  2. ATACAND [Suspect]
     Indication: HYPERTENSION
     Route: 048
     Dates: end: 20101229
  3. GEMZAR [Suspect]
     Indication: PANCREATIC CARCINOMA
     Dosage: 12 COURSES
     Route: 042
     Dates: start: 20100901, end: 20101208
  4. VOGALENE [Concomitant]
     Dates: start: 20101208, end: 20101208
  5. ARANESP [Suspect]
     Dates: start: 20101126, end: 20101126
  6. CREON [Concomitant]

REACTIONS (2)
  - ENCEPHALOPATHY [None]
  - PULMONARY HYPERTENSIVE CRISIS [None]
